FAERS Safety Report 21356255 (Version 3)
Quarter: 2025Q1

REPORT INFORMATION
  Report Type: Report from Study
  Country: CA (occurrence: CA)
  Receive Date: 20220920
  Receipt Date: 20250309
  Transmission Date: 20250408
  Serious: Yes (Other)
  Sender: TAKEDA
  Company Number: CA-TAKEDA-2022TUS064687

PATIENT
  Age: 87 Year
  Sex: Male

DRUGS (16)
  1. VEDOLIZUMAB [Suspect]
     Active Substance: VEDOLIZUMAB
     Indication: Colitis ulcerative
  2. VEDOLIZUMAB [Suspect]
     Active Substance: VEDOLIZUMAB
     Dosage: 300 MILLIGRAM, Q4WEEKS
     Dates: start: 20221025
  3. MESALAMINE [Concomitant]
     Active Substance: MESALAMINE
  4. Cortiment [Concomitant]
  5. PENTASA [Concomitant]
     Active Substance: MESALAMINE
  6. CLOBETASOL [Concomitant]
     Active Substance: CLOBETASOL
  7. EFUDEX [Concomitant]
     Active Substance: FLUOROURACIL
  8. CLOTRIMAZOLE [Concomitant]
     Active Substance: CLOTRIMAZOLE
  9. METOPROLOL [Concomitant]
     Active Substance: METOPROLOL
  10. METOPROLOL [Concomitant]
     Active Substance: METOPROLOL
  11. HYDROCHLOROTHIAZIDE\IRBESARTAN [Concomitant]
     Active Substance: HYDROCHLOROTHIAZIDE\IRBESARTAN
     Indication: Hypertension
     Dosage: 150 MILLIGRAM, QD
  12. HYDROCHLOROTHIAZIDE\IRBESARTAN [Concomitant]
     Active Substance: HYDROCHLOROTHIAZIDE\IRBESARTAN
     Dosage: 12.5 MILLIGRAM, QD
  13. DOXYCYCLINE [Concomitant]
     Active Substance: DOXYCYCLINE
  14. ENTOCORT [Concomitant]
     Active Substance: BUDESONIDE
  15. ARISTOCORT [Concomitant]
     Active Substance: TRIAMCINOLONE DIACETATE
  16. Salofalk [Concomitant]

REACTIONS (5)
  - Colitis ulcerative [Unknown]
  - Cataract [Recovered/Resolved]
  - Diarrhoea [Not Recovered/Not Resolved]
  - Drug effect less than expected [Unknown]
  - Off label use [Unknown]

NARRATIVE: CASE EVENT DATE: 20221025
